FAERS Safety Report 23588594 (Version 1)
Quarter: 2024Q1

REPORT INFORMATION
  Report Type: Spontaneous
  Country: ES (occurrence: ES)
  Receive Date: 20240302
  Receipt Date: 20240302
  Transmission Date: 20240410
  Serious: Yes (Other)
  Sender: FDA-Public Use
  Company Number: ES-Accord-290784

PATIENT
  Age: 11 Year
  Sex: Male

DRUGS (3)
  1. METHOTREXATE [Suspect]
     Active Substance: METHOTREXATE
     Indication: Osteosarcoma
     Dosage: HIGH-DOSE- 12 G/M2,THIRD INFUSION, CUMULATIVE DOSE -36 G/M2
  2. DOXORUBICIN [Concomitant]
     Active Substance: DOXORUBICIN
     Indication: Osteosarcoma
  3. IFOSFAMIDE [Concomitant]
     Active Substance: IFOSFAMIDE
     Indication: Osteosarcoma

REACTIONS (2)
  - Palmar-plantar erythrodysaesthesia syndrome [Recovered/Resolved]
  - Off label use [Unknown]
